FAERS Safety Report 14374559 (Version 2)
Quarter: 2018Q1

REPORT INFORMATION
  Report Type: Spontaneous
  Country: AU (occurrence: AU)
  Receive Date: 20180111
  Receipt Date: 20180212
  Transmission Date: 20180509
  Serious: Yes (Hospitalization, Other)
  Sender: FDA-Public Use
  Company Number: AU-ACCORD-062686

PATIENT
  Age: 58 Year
  Sex: Male

DRUGS (7)
  1. OLANZAPINE. [Suspect]
     Active Substance: OLANZAPINE
     Indication: PRODUCT USED FOR UNKNOWN INDICATION
  2. CLOZARIL [Suspect]
     Active Substance: CLOZAPINE
     Indication: PRODUCT USED FOR UNKNOWN INDICATION
  3. ABILIFY [Concomitant]
     Active Substance: ARIPIPRAZOLE
  4. RISPERIDONE. [Suspect]
     Active Substance: RISPERIDONE
     Indication: PRODUCT USED FOR UNKNOWN INDICATION
     Dosage: 200 MG AM AND 200 MG PM
  5. QUETIAPINE. [Suspect]
     Active Substance: QUETIAPINE
     Indication: PRODUCT USED FOR UNKNOWN INDICATION
  6. CLOPIXOL [Suspect]
     Active Substance: ZUCLOPENTHIXOL ACETATE
     Indication: PRODUCT USED FOR UNKNOWN INDICATION
     Dosage: 400 MG FORTNIGHTLY
  7. SOLIAN [Concomitant]
     Active Substance: AMISULPRIDE

REACTIONS (22)
  - Mitral valve incompetence [Unknown]
  - Escherichia infection [Unknown]
  - High density lipoprotein decreased [Not Recovered/Not Resolved]
  - Parkinsonian rest tremor [Unknown]
  - Schizophrenia [Unknown]
  - Extrapyramidal disorder [Unknown]
  - Eosinophil count increased [Not Recovered/Not Resolved]
  - Hypertension [Unknown]
  - Blood triglycerides increased [Recovered/Resolved]
  - Platelet count decreased [Recovered/Resolved]
  - Renal disorder [Unknown]
  - Cerebral atrophy [Unknown]
  - Blood alkaline phosphatase increased [Not Recovered/Not Resolved]
  - Blood cholesterol decreased [Unknown]
  - Conduction disorder [Unknown]
  - Total cholesterol/HDL ratio increased [Not Recovered/Not Resolved]
  - Supraventricular tachycardia [Unknown]
  - Left ventricular hypertrophy [Unknown]
  - Lymphocyte count decreased [Recovered/Resolved]
  - Muscle rigidity [Unknown]
  - Slow speech [Unknown]
  - Tricuspid valve incompetence [Unknown]

NARRATIVE: CASE EVENT DATE: 20110907
